FAERS Safety Report 4533481-3 (Version None)
Quarter: 2004Q4

REPORT INFORMATION
  Report Type: 
  Country: None (occurrence: None)
  Receive Date: 20041210
  Receipt Date: 20041105
  Transmission Date: 20050328
  Serious: Yes (Other)
  Sender: FDA-Public Use
  Company Number: A03200403720

PATIENT
  Sex: Female

DRUGS (6)
  1. ELOXATIN [Suspect]
     Indication: COLORECTAL CANCER
     Dosage: 145 MG Q2W - INTRAVENOUS NOS
     Route: 042
     Dates: start: 20041102, end: 20041102
  2. FLUOROURACIL [Concomitant]
  3. LEUCOVORIN [Concomitant]
  4. GRANISETRON [Concomitant]
  5. DEXAMETHASONE [Concomitant]
  6. DIPHENHYDRAMINE HYDROCHLORIDE [Concomitant]

REACTIONS (8)
  - ANAPHYLACTOID REACTION [None]
  - ANGIONEUROTIC OEDEMA [None]
  - PAIN IN JAW [None]
  - SKIN DISCOLOURATION [None]
  - STRIDOR [None]
  - SWELLING FACE [None]
  - SWOLLEN TONGUE [None]
  - TREMOR [None]
